FAERS Safety Report 8697077 (Version 2)
Quarter: 2012Q4

REPORT INFORMATION
  Report Type: 
  Country: FR (occurrence: FR)
  Receive Date: 20120801
  Receipt Date: 20120918
  Transmission Date: 20130627
  Serious: Yes (Death, Hospitalization)
  Sender: FDA-Public Use
  Company Number: FR-009507513-1207FRA011117

PATIENT

DRUGS (23)
  1. EMEND [Suspect]
     Indication: NAUSEA
     Dosage: 125 mg, qd
     Route: 048
     Dates: start: 20120423, end: 20120423
  2. EMEND [Interacting]
     Dosage: 80 mg, qd
     Route: 048
     Dates: start: 20120424, end: 20120425
  3. EMEND [Interacting]
     Dosage: 125 mg, qd
     Route: 048
     Dates: start: 20120322, end: 20120322
  4. EMEND [Interacting]
     Dosage: 80 mg, qd
     Route: 048
     Dates: start: 20120323, end: 20120324
  5. EMEND [Interacting]
     Dosage: 125 mg, qd
     Route: 048
     Dates: start: 201204, end: 201204
  6. EMEND [Interacting]
     Dosage: 80 mg, qd
     Route: 048
     Dates: start: 201204, end: 201204
  7. HOLOXAN [Interacting]
     Indication: SARCOMA
     Dosage: 3840 mg, qd
     Route: 042
     Dates: start: 20120423, end: 20120426
  8. HOLOXAN [Interacting]
     Dosage: 3840 mg, qd
     Route: 042
     Dates: start: 20120322, end: 20120325
  9. HOLOXAN [Interacting]
     Dosage: 3840 mg, qd
     Route: 042
     Dates: start: 201204, end: 201204
  10. ZOPHREN (ONDANSETRON) [Concomitant]
     Indication: PROPHYLAXIS OF NAUSEA AND VOMITING
     Dosage: 8 mg, bid
     Route: 042
     Dates: start: 20120423, end: 20120427
  11. GRANOCYTE [Concomitant]
     Dosage: 33600000 IU, qd
     Route: 042
     Dates: start: 20120428, end: 20120503
  12. CALCIPARINE [Concomitant]
     Dosage: 0.2 IU, qd
     Dates: start: 20120509, end: 20120520
  13. SOLU-MEDROL [Concomitant]
     Dosage: 60 mg, qd
     Route: 042
     Dates: start: 20120423, end: 20120427
  14. UROMITEXAN [Concomitant]
     Dosage: 2000 mg, qd
     Route: 042
     Dates: start: 20120423, end: 20120427
  15. ALPRAZOLAM [Concomitant]
     Dosage: 0.25 mg, qd
     Route: 048
  16. LYRICA [Concomitant]
     Dosage: 75 mg, qd
     Route: 048
  17. SEROPLEX [Concomitant]
     Dosage: 10 mg, qd
     Route: 048
  18. SMECTA [Concomitant]
     Dosage: 1 g, tid
     Dates: end: 20120504
  19. STAGID [Concomitant]
     Dosage: 700 mg, bid
  20. ZOPICLONE [Concomitant]
     Dosage: 7.5 g, qd
     Route: 048
  21. CETIRIZINE HYDROCHLORIDE [Concomitant]
     Dosage: 5 mg, UNK
     Route: 048
  22. VOGALENE [Concomitant]
     Dosage: 7.5 g, tid
     Dates: start: 20120428
  23. TARDYFERON [Concomitant]
     Dosage: 80 mg, bid
     Route: 048
     Dates: start: 20120428

REACTIONS (6)
  - Toxic encephalopathy [Fatal]
  - Drug interaction [Fatal]
  - Renal failure [Recovering/Resolving]
  - Pancytopenia [Recovering/Resolving]
  - Septic shock [Unknown]
  - Lung disorder [Unknown]
